FAERS Safety Report 11333582 (Version 1)
Quarter: 2015Q3

REPORT INFORMATION
  Report Type: Spontaneous
  Country: US (occurrence: US)
  Receive Date: 20150803
  Receipt Date: 20150803
  Transmission Date: 20151125
  Serious: No
  Sender: FDA-Public Use
  Company Number: US-ELI_LILLY_AND_COMPANY-US200801004697

PATIENT
  Age: 56 Year
  Sex: Male
  Weight: 102.4 kg

DRUGS (6)
  1. PROZAC [Concomitant]
     Active Substance: FLUOXETINE HYDROCHLORIDE
     Dates: start: 2003
  2. SEROQUEL [Concomitant]
     Active Substance: QUETIAPINE FUMARATE
     Dates: start: 200506
  3. ZYPREXA [Suspect]
     Active Substance: OLANZAPINE
     Dates: start: 20030701, end: 20060402
  4. ZYPREXA [Suspect]
     Active Substance: OLANZAPINE
     Dosage: 10 MG, UNK
     Dates: start: 2002, end: 2005
  5. ZYPREXA [Suspect]
     Active Substance: OLANZAPINE
     Dosage: 15 MG, UNK
  6. WELLBUTRIN [Concomitant]
     Active Substance: BUPROPION HYDROCHLORIDE
     Dates: start: 2003

REACTIONS (3)
  - Metabolic disorder [Unknown]
  - Diabetes mellitus [Not Recovered/Not Resolved]
  - Ketonuria [Unknown]

NARRATIVE: CASE EVENT DATE: 200504
